FAERS Safety Report 11694715 (Version 1)
Quarter: 2015Q4

REPORT INFORMATION
  Report Type: Spontaneous
  Country: US (occurrence: US)
  Receive Date: 20151103
  Receipt Date: 20151103
  Transmission Date: 20160304
  Serious: No
  Sender: FDA-Public Use
  Company Number: US-BAUSCH-BL-2014-011323

PATIENT
  Age: 71 Year
  Sex: Female

DRUGS (1)
  1. NEOMYCIN AND POLYMYXIN B SULFATES AND DEXAMETHASONE OPHTHALMIC SUSPENS [Suspect]
     Active Substance: DEXAMETHASONE\NEOMYCIN\POLYMYXIN B SULFATE
     Indication: CONJUNCTIVITIS
     Route: 047
     Dates: start: 20141218

REACTIONS (1)
  - Abdominal discomfort [Recovering/Resolving]

NARRATIVE: CASE EVENT DATE: 20141218
